FAERS Safety Report 11378683 (Version 2)
Quarter: 2015Q3

REPORT INFORMATION
  Report Type: Spontaneous
  Country: US (occurrence: US)
  Receive Date: 20150811
  Receipt Date: 20150903
  Transmission Date: 20151125
  Serious: No
  Sender: FDA-Public Use
  Company Number: US-ELI_LILLY_AND_COMPANY-US200901002359

PATIENT
  Age: 57 Year
  Sex: Male

DRUGS (8)
  1. HUMALOG [Suspect]
     Active Substance: INSULIN LISPRO
     Dosage: UNK, UNK
     Dates: start: 1993
  2. HUMALOG [Suspect]
     Active Substance: INSULIN LISPRO
     Dosage: UNK, UNK
     Dates: start: 1993
  3. HUMULIN R [Suspect]
     Active Substance: INSULIN HUMAN
  4. SYMLIN [Concomitant]
     Active Substance: PRAMLINTIDE ACETATE
     Dates: start: 200812, end: 200901
  5. HUMULIN R [Suspect]
     Active Substance: INSULIN HUMAN
     Dates: start: 1997
  6. HUMULIN R [Suspect]
     Active Substance: INSULIN HUMAN
     Dates: start: 1997
  7. HUMALOG [Suspect]
     Active Substance: INSULIN LISPRO
  8. LANTUS [Concomitant]
     Active Substance: INSULIN GLARGINE

REACTIONS (6)
  - Blood glucose increased [Unknown]
  - Blood glucose increased [Recovered/Resolved]
  - Drug ineffective [Unknown]
  - Malaise [Unknown]
  - Expired product administered [Unknown]
  - Drug ineffective [Recovered/Resolved]

NARRATIVE: CASE EVENT DATE: 200812
